FAERS Safety Report 7011874-2 (Version None)
Quarter: 2010Q3

REPORT INFORMATION
  Report Type: 
  Country: None (occurrence: None)
  Receive Date: 20100924
  Receipt Date: 20100910
  Transmission Date: 20110219
  Serious: Yes (Hospitalization)
  Sender: FDA-Public Use
  Company Number: DE-MYLANLABS-2009S1003546

PATIENT
  Age: 75 Year
  Sex: Female
  Weight: 83 kg

DRUGS (7)
  1. BISOPROLOL FUMARATE [Suspect]
     Indication: HYPERTENSION
     Route: 048
     Dates: end: 20081107
  2. FELODIPINE [Suspect]
     Indication: HYPERTENSION
     Route: 048
  3. FELODIPINE [Suspect]
     Route: 048
  4. MOXONIDINE [Suspect]
     Indication: HYPERTENSION
     Route: 048
  5. FOLSAEURE [Concomitant]
     Indication: PROPHYLAXIS
     Route: 048
     Dates: end: 20081107
  6. GINGIUM [Concomitant]
     Indication: PROPHYLAXIS
     Route: 048
     Dates: end: 20081107
  7. RAMIPRIL [Concomitant]
     Indication: HYPERTENSION
     Route: 048

REACTIONS (1)
  - SINUS BRADYCARDIA [None]
